FAERS Safety Report 23242704 (Version 3)
Quarter: 2024Q1

REPORT INFORMATION
  Report Type: Spontaneous
  Country: CA (occurrence: CA)
  Receive Date: 20231129
  Receipt Date: 20240215
  Transmission Date: 20240410
  Serious: Yes (Death, Life-Threatening, Hospitalization, Disabling, Other)
  Sender: FDA-Public Use
  Company Number: CA-BAUSCH-BL-2023-017463

PATIENT
  Age: 48 Year
  Sex: Female
  Weight: 68 kg

DRUGS (206)
  1. DICLOFENAC SODIUM [Suspect]
     Active Substance: DICLOFENAC\DICLOFENAC SODIUM
     Indication: Product used for unknown indication
     Route: 065
  2. DICLOFENAC SODIUM [Suspect]
     Active Substance: DICLOFENAC\DICLOFENAC SODIUM
     Indication: Product used for unknown indication
     Route: 065
  3. DICLOFENAC POTASSIUM [Suspect]
     Active Substance: DICLOFENAC POTASSIUM
     Indication: Product used for unknown indication
     Route: 058
  4. HYDROCORTISONE [Suspect]
     Active Substance: HYDROCORTISONE
     Indication: Product used for unknown indication
     Route: 065
  5. MINOCYCLINE HYDROCHLORIDE [Suspect]
     Active Substance: MINOCYCLINE HYDROCHLORIDE
     Indication: Product used for unknown indication
     Route: 065
  6. MINOCYCLINE HYDROCHLORIDE [Suspect]
     Active Substance: MINOCYCLINE HYDROCHLORIDE
     Dosage: MINOCYCLINE
     Route: 065
  7. TOPICORT [Suspect]
     Active Substance: DESOXIMETASONE
     Indication: Rheumatoid arthritis
     Route: 065
  8. CORTISONE ACETATE [Suspect]
     Active Substance: CORTISONE ACETATE
     Indication: Rheumatoid arthritis
     Route: 048
  9. CORTISONE ACETATE [Suspect]
     Active Substance: CORTISONE ACETATE
     Route: 065
  10. DESOXIMETASONE [Suspect]
     Active Substance: DESOXIMETASONE
     Indication: Rheumatoid arthritis
     Route: 003
  11. DESOXIMETASONE [Suspect]
     Active Substance: DESOXIMETASONE
     Route: 065
  12. DESOXIMETASONE [Suspect]
     Active Substance: DESOXIMETASONE
     Indication: Rheumatoid arthritis
     Route: 048
  13. DESOXIMETASONE [Suspect]
     Active Substance: DESOXIMETASONE
     Route: 048
  14. DESOXIMETASONE [Suspect]
     Active Substance: DESOXIMETASONE
     Route: 067
  15. DESOXIMETASONE [Suspect]
     Active Substance: DESOXIMETASONE
     Route: 058
  16. DESOXIMETASONE [Suspect]
     Active Substance: DESOXIMETASONE
     Route: 003
  17. DESOXIMETASONE [Suspect]
     Active Substance: DESOXIMETASONE
     Route: 061
  18. ACTEMRA [Suspect]
     Active Substance: TOCILIZUMAB
     Indication: Rheumatoid arthritis
     Route: 042
  19. ACTEMRA [Suspect]
     Active Substance: TOCILIZUMAB
     Route: 065
  20. ACTEMRA [Suspect]
     Active Substance: TOCILIZUMAB
     Route: 042
  21. ACTEMRA [Suspect]
     Active Substance: TOCILIZUMAB
     Route: 042
  22. ACTEMRA [Suspect]
     Active Substance: TOCILIZUMAB
     Route: 048
  23. ACTEMRA [Suspect]
     Active Substance: TOCILIZUMAB
     Dosage: INTRACARDIAC
     Route: 016
  24. ACTEMRA [Suspect]
     Active Substance: TOCILIZUMAB
     Route: 042
  25. ACTEMRA [Suspect]
     Active Substance: TOCILIZUMAB
     Route: 065
  26. ADALIMUMAB [Suspect]
     Active Substance: ADALIMUMAB\ISOPROPYL ALCOHOL
     Indication: Rheumatoid arthritis
     Dosage: SOLUTION SUBCUTANEOUS
     Route: 064
  27. ADALIMUMAB [Suspect]
     Active Substance: ADALIMUMAB\ISOPROPYL ALCOHOL
     Dosage: SOLUTION SUBCUTANEOUS
     Route: 058
  28. ALENDRONIC ACID [Suspect]
     Active Substance: ALENDRONIC ACID
     Indication: Rheumatoid arthritis
     Dosage: ALENDRONATE SODIUM, INTRACARDIAC
     Route: 016
  29. ALENDRONIC ACID [Suspect]
     Active Substance: ALENDRONIC ACID
     Dosage: ALENDRONATE SODIUM
     Route: 048
  30. ALENDRONIC ACID [Suspect]
     Active Substance: ALENDRONIC ACID
     Route: 048
  31. ALENDRONIC ACID [Suspect]
     Active Substance: ALENDRONIC ACID
     Dosage: INTRACARDIAC
     Route: 016
  32. PREDNISONE [Suspect]
     Active Substance: PREDNISONE
     Indication: Rheumatoid arthritis
     Route: 048
  33. PREDNISONE [Suspect]
     Active Substance: PREDNISONE
     Route: 048
  34. PREDNISONE [Suspect]
     Active Substance: PREDNISONE
     Route: 048
  35. PREDNISONE [Suspect]
     Active Substance: PREDNISONE
     Route: 064
  36. ARAVA [Suspect]
     Active Substance: LEFLUNOMIDE
     Indication: Rheumatoid arthritis
     Route: 065
  37. ARAVA [Suspect]
     Active Substance: LEFLUNOMIDE
     Route: 005
  38. ARAVA [Suspect]
     Active Substance: LEFLUNOMIDE
     Route: 048
  39. ARAVA [Suspect]
     Active Substance: LEFLUNOMIDE
     Route: 048
  40. AZATHIOPRINE [Suspect]
     Active Substance: AZATHIOPRINE
     Indication: Product used for unknown indication
     Route: 065
  41. CALCIUM CARBONATE [Suspect]
     Active Substance: CALCIUM CARBONATE
     Indication: Product used for unknown indication
     Route: 065
  42. CALCIUM CARBONATE [Suspect]
     Active Substance: CALCIUM CARBONATE
     Dosage: CALCIUM GLUBIONATE, INTRACARDIAC
     Route: 016
  43. CALCIUM CARBONATE [Suspect]
     Active Substance: CALCIUM CARBONATE
     Dosage: CALCIUM GLUBIONATE, INTRACARDIAC
     Route: 016
  44. CERTOLIZUMAB PEGOL [Suspect]
     Active Substance: CERTOLIZUMAB PEGOL
     Indication: Rheumatoid arthritis
     Route: 058
  45. CERTOLIZUMAB PEGOL [Suspect]
     Active Substance: CERTOLIZUMAB PEGOL
     Route: 065
  46. CETIRIZINE HYDROCHLORIDE [Suspect]
     Active Substance: CETIRIZINE HYDROCHLORIDE
     Indication: Rheumatoid arthritis
     Route: 048
  47. CETIRIZINE HYDROCHLORIDE [Suspect]
     Active Substance: CETIRIZINE HYDROCHLORIDE
     Indication: Off label use
     Route: 048
  48. CETIRIZINE HYDROCHLORIDE [Suspect]
     Active Substance: CETIRIZINE HYDROCHLORIDE
     Route: 064
  49. CETIRIZINE HYDROCHLORIDE [Suspect]
     Active Substance: CETIRIZINE HYDROCHLORIDE
     Route: 065
  50. CETIRIZINE HYDROCHLORIDE\PSEUDOEPHEDRINE HYDROCHLORIDE [Suspect]
     Active Substance: CETIRIZINE HYDROCHLORIDE\PSEUDOEPHEDRINE HYDROCHLORIDE
     Indication: Rheumatoid arthritis
     Route: 065
  51. CETIRIZINE HYDROCHLORIDE\PSEUDOEPHEDRINE HYDROCHLORIDE [Suspect]
     Active Substance: CETIRIZINE HYDROCHLORIDE\PSEUDOEPHEDRINE HYDROCHLORIDE
     Route: 048
  52. CETIRIZINE HYDROCHLORIDE\PSEUDOEPHEDRINE HYDROCHLORIDE [Suspect]
     Active Substance: CETIRIZINE HYDROCHLORIDE\PSEUDOEPHEDRINE HYDROCHLORIDE
     Route: 067
  53. CHLORHEXIDINE ACETATE [Suspect]
     Active Substance: CHLORHEXIDINE ACETATE
     Indication: Product used for unknown indication
     Route: 061
  54. CHLORHEXIDINE ACETATE [Suspect]
     Active Substance: CHLORHEXIDINE ACETATE
     Dosage: CHLORHEXIDINE
     Route: 061
  55. CHLORHEXIDINE ACETATE [Suspect]
     Active Substance: CHLORHEXIDINE ACETATE
     Dosage: CHLORHEXIDINE
     Route: 005
  56. CHLORHEXIDINE ACETATE [Suspect]
     Active Substance: CHLORHEXIDINE ACETATE
     Route: 065
  57. CHLORHEXIDINE GLUCONATE\ISOPROPYL ALCOHOL [Suspect]
     Active Substance: CHLORHEXIDINE GLUCONATE\ISOPROPYL ALCOHOL
     Indication: Product used for unknown indication
     Route: 061
  58. CIMZIA [Suspect]
     Active Substance: CERTOLIZUMAB PEGOL
     Indication: Rheumatoid arthritis
     Route: 058
  59. CIMZIA [Suspect]
     Active Substance: CERTOLIZUMAB PEGOL
     Route: 064
  60. CIMZIA [Suspect]
     Active Substance: CERTOLIZUMAB PEGOL
     Route: 065
  61. CORTISONE ACETATE [Suspect]
     Active Substance: CORTISONE ACETATE
     Indication: Rheumatoid arthritis
     Route: 048
  62. CORTISONE ACETATE [Suspect]
     Active Substance: CORTISONE ACETATE
     Route: 061
  63. CORTISONE ACETATE [Suspect]
     Active Substance: CORTISONE ACETATE
     Route: 048
  64. CORTISONE ACETATE [Suspect]
     Active Substance: CORTISONE ACETATE
     Route: 061
  65. CORTISONE ACETATE [Suspect]
     Active Substance: CORTISONE ACETATE
     Route: 064
  66. CORTISONE ACETATE [Suspect]
     Active Substance: CORTISONE ACETATE
     Dosage: TABLET
     Route: 061
  67. CORTISONE ACETATE [Suspect]
     Active Substance: CORTISONE ACETATE
     Route: 065
  68. CORTISONE ACETATE [Suspect]
     Active Substance: CORTISONE ACETATE
     Route: 065
  69. COSENTYX [Suspect]
     Active Substance: SECUKINUMAB
     Indication: Rheumatoid arthritis
     Route: 005
  70. COSENTYX [Suspect]
     Active Substance: SECUKINUMAB
     Route: 065
  71. DIPHENHYDRAMINE HYDROCHLORIDE [Suspect]
     Active Substance: DIPHENHYDRAMINE HYDROCHLORIDE
     Indication: Product used for unknown indication
     Route: 065
  72. ENBREL [Suspect]
     Active Substance: ETANERCEPT
     Indication: Rheumatoid arthritis
     Route: 058
  73. ENBREL [Suspect]
     Active Substance: ETANERCEPT
     Route: 058
  74. ENBREL [Suspect]
     Active Substance: ETANERCEPT
     Route: 058
  75. ENBREL [Suspect]
     Active Substance: ETANERCEPT
     Route: 064
  76. ENBREL [Suspect]
     Active Substance: ETANERCEPT
     Route: 065
  77. ENBREL [Suspect]
     Active Substance: ETANERCEPT
     Route: 058
  78. ENBREL [Suspect]
     Active Substance: ETANERCEPT
     Route: 064
  79. ENBREL [Suspect]
     Active Substance: ETANERCEPT
     Route: 058
  80. ETANERCEPT [Suspect]
     Active Substance: ETANERCEPT
     Indication: Rheumatoid arthritis
     Route: 058
  81. ETANERCEPT [Suspect]
     Active Substance: ETANERCEPT
     Route: 058
  82. ETANERCEPT [Suspect]
     Active Substance: ETANERCEPT
     Route: 065
  83. FOLIC ACID [Suspect]
     Active Substance: FOLIC ACID
     Indication: Rheumatoid arthritis
     Route: 065
  84. FOLIC ACID [Suspect]
     Active Substance: FOLIC ACID
     Route: 048
  85. FOLIC ACID [Suspect]
     Active Substance: FOLIC ACID
     Route: 048
  86. FOLIC ACID [Suspect]
     Active Substance: FOLIC ACID
     Route: 048
  87. FOLIC ACID [Suspect]
     Active Substance: FOLIC ACID
     Route: 058
  88. FOLIC ACID [Suspect]
     Active Substance: FOLIC ACID
     Route: 065
  89. FOLIC ACID [Suspect]
     Active Substance: FOLIC ACID
     Route: 065
  90. FOLIC ACID [Suspect]
     Active Substance: FOLIC ACID
     Route: 065
  91. FOLIC ACID [Suspect]
     Active Substance: FOLIC ACID
     Route: 065
  92. FOLIC ACID [Suspect]
     Active Substance: FOLIC ACID
     Route: 065
  93. FOLIC ACID [Suspect]
     Active Substance: FOLIC ACID
     Route: 065
  94. FOSAMAX [Suspect]
     Active Substance: ALENDRONATE SODIUM
     Indication: Rheumatoid arthritis
     Route: 058
  95. FOSAMAX [Suspect]
     Active Substance: ALENDRONATE SODIUM
     Route: 048
  96. FOSAMAX [Suspect]
     Active Substance: ALENDRONATE SODIUM
     Dosage: INTRACARDIAC
     Route: 016
  97. FOSAMAX [Suspect]
     Active Substance: ALENDRONATE SODIUM
     Route: 016
  98. FOSAMAX [Suspect]
     Active Substance: ALENDRONATE SODIUM
     Route: 064
  99. FOSAMAX [Suspect]
     Active Substance: ALENDRONATE SODIUM
     Route: 065
  100. HUMIRA [Suspect]
     Active Substance: ADALIMUMAB
     Indication: Rheumatoid arthritis
     Dosage: SOLUTION SUBCUTANEOUS
     Route: 058
  101. HUMIRA [Suspect]
     Active Substance: ADALIMUMAB
     Indication: Psoriatic arthropathy
     Dosage: SOLUTION SUBCUTANEOUS
     Route: 058
  102. HUMIRA [Suspect]
     Active Substance: ADALIMUMAB
     Dosage: SOLUTION SUBCUTANEOUS
     Route: 058
  103. HUMIRA [Suspect]
     Active Substance: ADALIMUMAB
     Dosage: SOLUTION SUBCUTANEOUS
     Route: 058
  104. HUMIRA [Suspect]
     Active Substance: ADALIMUMAB
     Route: 058
  105. HUMIRA [Suspect]
     Active Substance: ADALIMUMAB
     Route: 064
  106. HUMIRA [Suspect]
     Active Substance: ADALIMUMAB
     Route: 058
  107. HUMIRA [Suspect]
     Active Substance: ADALIMUMAB
     Route: 058
  108. HYDROXYCHLOROQUINE [Suspect]
     Active Substance: HYDROXYCHLOROQUINE
     Indication: Rheumatoid arthritis
     Route: 048
  109. HYDROXYCHLOROQUINE [Suspect]
     Active Substance: HYDROXYCHLOROQUINE
     Route: 005
  110. HYDROXYCHLOROQUINE [Suspect]
     Active Substance: HYDROXYCHLOROQUINE
     Dosage: HYDROXYCHLOROQUINE SULFATE, TABLETS, USP
     Route: 065
  111. HYDROXYCHLOROQUINE [Suspect]
     Active Substance: HYDROXYCHLOROQUINE
     Dosage: HYDROXYCHLOROQUINE SULFATE, TABLETS, USP
     Route: 065
  112. HYDROXYCHLOROQUINE [Suspect]
     Active Substance: HYDROXYCHLOROQUINE
     Dosage: HYDROXYCHLOROQUINE SULFATE, TABLETS, USP
     Route: 058
  113. HYDROXYCHLOROQUINE [Suspect]
     Active Substance: HYDROXYCHLOROQUINE
     Dosage: HYDROXYCHLOROQUINE SULFATE, TABLETS, USP
     Route: 048
  114. IBUPROFEN [Suspect]
     Active Substance: IBUPROFEN
     Indication: Product used for unknown indication
     Route: 065
  115. KEVZARA [Suspect]
     Active Substance: SARILUMAB
     Indication: Rheumatoid arthritis
     Route: 065
  116. METHOTREXATE [Suspect]
     Active Substance: METHOTREXATE
     Indication: Rheumatoid arthritis
     Route: 048
  117. METHOTREXATE [Suspect]
     Active Substance: METHOTREXATE
     Route: 048
  118. METHOTREXATE [Suspect]
     Active Substance: METHOTREXATE
     Route: 013
  119. METHOTREXATE [Suspect]
     Active Substance: METHOTREXATE
     Route: 058
  120. METHOTREXATE [Suspect]
     Active Substance: METHOTREXATE
     Route: 064
  121. METHOTREXATE [Suspect]
     Active Substance: METHOTREXATE
     Route: 065
  122. METHOTREXATE [Suspect]
     Active Substance: METHOTREXATE
     Route: 042
  123. METHOTREXATE [Suspect]
     Active Substance: METHOTREXATE
     Route: 013
  124. METHOTREXATE [Suspect]
     Active Substance: METHOTREXATE
     Route: 048
  125. METHOTREXATE [Suspect]
     Active Substance: METHOTREXATE
     Route: 058
  126. METHOTREXATE [Suspect]
     Active Substance: METHOTREXATE
     Route: 064
  127. METHOTREXATE [Suspect]
     Active Substance: METHOTREXATE
     Route: 065
  128. METHOTREXATE [Suspect]
     Active Substance: METHOTREXATE
     Route: 048
  129. METHOTREXATE [Suspect]
     Active Substance: METHOTREXATE
     Route: 048
  130. METHOTREXATE [Suspect]
     Active Substance: METHOTREXATE
     Route: 058
  131. METHOTREXATE [Suspect]
     Active Substance: METHOTREXATE
     Route: 048
  132. METHOTREXATE [Suspect]
     Active Substance: METHOTREXATE
     Route: 064
  133. METHOTREXATE [Suspect]
     Active Substance: METHOTREXATE
     Route: 065
  134. METHOTREXATE [Suspect]
     Active Substance: METHOTREXATE
     Route: 013
  135. METHOTREXATE [Suspect]
     Active Substance: METHOTREXATE
     Route: 065
  136. METHOTREXATE [Suspect]
     Active Substance: METHOTREXATE
     Route: 058
  137. METHOTREXATE [Suspect]
     Active Substance: METHOTREXATE
     Route: 048
  138. METHOTREXATE [Suspect]
     Active Substance: METHOTREXATE
     Route: 048
  139. MORPHINE [Suspect]
     Active Substance: MORPHINE
     Indication: Product used for unknown indication
     Route: 065
  140. NEOMYCIN [Suspect]
     Active Substance: NEOMYCIN
     Indication: Product used for unknown indication
     Route: 048
  141. ORENCIA [Suspect]
     Active Substance: ABATACEPT
     Indication: Rheumatoid arthritis
     Route: 058
  142. ORENCIA [Suspect]
     Active Substance: ABATACEPT
     Route: 042
  143. ORENCIA [Suspect]
     Active Substance: ABATACEPT
     Route: 058
  144. ORENCIA [Suspect]
     Active Substance: ABATACEPT
     Route: 064
  145. ORENCIA [Suspect]
     Active Substance: ABATACEPT
     Route: 058
  146. ORENCIA [Suspect]
     Active Substance: ABATACEPT
     Route: 048
  147. ORENCIA [Suspect]
     Active Substance: ABATACEPT
     Route: 058
  148. PANTOPRAZOLE [Suspect]
     Active Substance: PANTOPRAZOLE
     Indication: Dyspepsia
     Route: 048
  149. PERIOGARD [Suspect]
     Active Substance: CHLORHEXIDINE GLUCONATE
     Indication: Product used for unknown indication
     Route: 065
  150. PHTHALYLSULFATHIAZOLE [Suspect]
     Active Substance: PHTHALYLSULFATHIAZOLE
     Indication: Rheumatoid arthritis
     Dosage: INTRACARDIAC
     Route: 016
  151. PHTHALYLSULFATHIAZOLE [Suspect]
     Active Substance: PHTHALYLSULFATHIAZOLE
     Dosage: INTRACARDIAC
     Route: 016
  152. PHTHALYLSULFATHIAZOLE [Suspect]
     Active Substance: PHTHALYLSULFATHIAZOLE
     Route: 065
  153. PHTHALYLSULFATHIAZOLE [Suspect]
     Active Substance: PHTHALYLSULFATHIAZOLE
     Route: 048
  154. PHTHALYLSULFATHIAZOLE [Suspect]
     Active Substance: PHTHALYLSULFATHIAZOLE
     Dosage: INTRACARDIAC
     Route: 064
  155. PREDNISONE [Suspect]
     Active Substance: PREDNISONE
     Indication: Rheumatoid arthritis
     Route: 061
  156. PREDNISONE [Suspect]
     Active Substance: PREDNISONE
     Indication: Condition aggravated
     Route: 048
  157. PREDNISONE [Suspect]
     Active Substance: PREDNISONE
     Route: 048
  158. PREDNISONE [Suspect]
     Active Substance: PREDNISONE
     Route: 048
  159. PREDNISONE [Suspect]
     Active Substance: PREDNISONE
     Route: 048
  160. PREDNISONE [Suspect]
     Active Substance: PREDNISONE
     Route: 065
  161. PREDNISONE [Suspect]
     Active Substance: PREDNISONE
     Dosage: INTRACARDIAC
     Route: 016
  162. PREDNISONE [Suspect]
     Active Substance: PREDNISONE
     Route: 065
  163. PREDNISONE [Suspect]
     Active Substance: PREDNISONE
     Route: 048
  164. PREDNISONE [Suspect]
     Active Substance: PREDNISONE
     Route: 042
  165. PREDNISONE [Suspect]
     Active Substance: PREDNISONE
     Route: 065
  166. PSEUDOEPHEDRINE HYDROCHLORIDE [Suspect]
     Active Substance: PSEUDOEPHEDRINE HYDROCHLORIDE
     Indication: Rheumatoid arthritis
     Route: 048
  167. PSEUDOEPHEDRINE HYDROCHLORIDE [Suspect]
     Active Substance: PSEUDOEPHEDRINE HYDROCHLORIDE
     Route: 064
  168. PSEUDOEPHEDRINE HYDROCHLORIDE [Suspect]
     Active Substance: PSEUDOEPHEDRINE HYDROCHLORIDE
     Route: 065
  169. CETIRIZINE HYDROCHLORIDE [Suspect]
     Active Substance: CETIRIZINE HYDROCHLORIDE
     Indication: Rheumatoid arthritis
     Dosage: TABLET (EXTENDED- RELEASE)
     Route: 067
  170. CETIRIZINE HYDROCHLORIDE [Suspect]
     Active Substance: CETIRIZINE HYDROCHLORIDE
     Route: 048
  171. CETIRIZINE HYDROCHLORIDE [Suspect]
     Active Substance: CETIRIZINE HYDROCHLORIDE
     Route: 048
  172. CETIRIZINE HYDROCHLORIDE [Suspect]
     Active Substance: CETIRIZINE HYDROCHLORIDE
     Route: 065
  173. CETIRIZINE HYDROCHLORIDE [Suspect]
     Active Substance: CETIRIZINE HYDROCHLORIDE
     Route: 065
  174. CETIRIZINE HYDROCHLORIDE [Suspect]
     Active Substance: CETIRIZINE HYDROCHLORIDE
     Route: 065
  175. RITUXIMAB [Suspect]
     Active Substance: RITUXIMAB
     Indication: Rheumatoid arthritis
     Route: 042
  176. RITUXIMAB [Suspect]
     Active Substance: RITUXIMAB
     Route: 058
  177. RITUXIMAB [Suspect]
     Active Substance: RITUXIMAB
     Route: 064
  178. RITUXIMAB [Suspect]
     Active Substance: RITUXIMAB
     Route: 041
  179. SIMPONI [Suspect]
     Active Substance: GOLIMUMAB
     Indication: Rheumatoid arthritis
     Route: 058
  180. SIMPONI [Suspect]
     Active Substance: GOLIMUMAB
     Route: 058
  181. SIMPONI [Suspect]
     Active Substance: GOLIMUMAB
     Route: 042
  182. SIMPONI [Suspect]
     Active Substance: GOLIMUMAB
     Route: 058
  183. SIMPONI [Suspect]
     Active Substance: GOLIMUMAB
     Route: 058
  184. SIMPONI [Suspect]
     Active Substance: GOLIMUMAB
     Route: 042
  185. SIMPONI [Suspect]
     Active Substance: GOLIMUMAB
     Route: 064
  186. SOLU-MEDROL [Suspect]
     Active Substance: METHYLPREDNISOLONE SODIUM SUCCINATE
     Indication: Product used for unknown indication
     Dosage: PFIZER ITALIA S.R.L
     Route: 065
  187. SOLU-MEDROL [Suspect]
     Active Substance: METHYLPREDNISOLONE SODIUM SUCCINATE
     Route: 064
  188. STELARA [Suspect]
     Active Substance: USTEKINUMAB
     Indication: Rheumatoid arthritis
     Route: 058
  189. STELARA [Suspect]
     Active Substance: USTEKINUMAB
     Route: 065
  190. SULFASALAZINE [Suspect]
     Active Substance: SULFASALAZINE
     Indication: Rheumatoid arthritis
     Route: 065
  191. SULFASALAZINE [Suspect]
     Active Substance: SULFASALAZINE
     Route: 048
  192. SULFASALAZINE [Suspect]
     Active Substance: SULFASALAZINE
     Route: 058
  193. SULFASALAZINE [Suspect]
     Active Substance: SULFASALAZINE
     Route: 048
  194. SULFASALAZINE [Suspect]
     Active Substance: SULFASALAZINE
     Route: 058
  195. SULFASALAZINE [Suspect]
     Active Substance: SULFASALAZINE
     Route: 048
  196. SULFASALAZINE [Suspect]
     Active Substance: SULFASALAZINE
     Route: 048
  197. SULFASALAZINE [Suspect]
     Active Substance: SULFASALAZINE
     Route: 048
  198. SULFASALAZINE [Suspect]
     Active Substance: SULFASALAZINE
     Route: 048
  199. TOCILIZUMAB [Suspect]
     Active Substance: TOCILIZUMAB
     Indication: Rheumatoid arthritis
     Route: 061
  200. TOCILIZUMAB [Suspect]
     Active Substance: TOCILIZUMAB
     Route: 058
  201. TOCILIZUMAB [Suspect]
     Active Substance: TOCILIZUMAB
     Route: 042
  202. TOCILIZUMAB [Suspect]
     Active Substance: TOCILIZUMAB
     Route: 064
  203. TOCILIZUMAB [Suspect]
     Active Substance: TOCILIZUMAB
     Route: 061
  204. TOCILIZUMAB [Suspect]
     Active Substance: TOCILIZUMAB
     Route: 065
  205. VITAMIN B COMPLEX [Suspect]
     Active Substance: CYANOCOBALAMIN\DEXPANTHENOL\NIACINAMIDE\PYRIDOXINE HYDROCHLORIDE\RIBOFLAVIN 5^-PHOSPHATE SODIUM\THIA
     Indication: Product used for unknown indication
     Route: 065
  206. VITAMIN C [Suspect]
     Active Substance: ASCORBIC ACID
     Indication: Product used for unknown indication
     Route: 048

REACTIONS (165)
  - Adjustment disorder with depressed mood [Fatal]
  - Anti-cyclic citrullinated peptide antibody [Fatal]
  - Anti-cyclic citrullinated peptide antibody positive [Fatal]
  - Arthralgia [Fatal]
  - Arthropathy [Fatal]
  - Autoimmune disorder [Fatal]
  - Blister [Fatal]
  - Blood cholesterol increased [Fatal]
  - Bone erosion [Fatal]
  - Chest pain [Fatal]
  - Bursitis [Fatal]
  - C-reactive protein abnormal [Fatal]
  - Contusion [Fatal]
  - Breast cancer stage II [Fatal]
  - Deep vein thrombosis postoperative [Fatal]
  - Delirium [Fatal]
  - Discomfort [Fatal]
  - Dislocation of vertebra [Fatal]
  - Ear pain [Fatal]
  - Exostosis [Fatal]
  - Facet joint syndrome [Fatal]
  - Fibromyalgia [Fatal]
  - Foot deformity [Fatal]
  - Gait disturbance [Fatal]
  - Gastrointestinal disorder [Fatal]
  - Hypoaesthesia [Fatal]
  - Hepatic cirrhosis [Fatal]
  - Glossodynia [Fatal]
  - Hip arthroplasty [Fatal]
  - Hand deformity [Fatal]
  - Infusion related reaction [Fatal]
  - Ill-defined disorder [Fatal]
  - Hypercholesterolaemia [Fatal]
  - Injury [Fatal]
  - Inflammation [Fatal]
  - Irritable bowel syndrome [Fatal]
  - General physical health deterioration [Fatal]
  - Grip strength decreased [Fatal]
  - Joint dislocation [Fatal]
  - Impaired healing [Fatal]
  - Lower limb fracture [Fatal]
  - Liver disorder [Fatal]
  - Muscle injury [Fatal]
  - Joint range of motion decreased [Fatal]
  - Muscle spasms [Fatal]
  - Joint stiffness [Fatal]
  - Osteoarthritis [Fatal]
  - Lupus-like syndrome [Fatal]
  - Muscular weakness [Fatal]
  - Pain in extremity [Fatal]
  - Pericarditis [Fatal]
  - Osteoporosis [Fatal]
  - Seronegative arthritis [Fatal]
  - Psoriatic arthropathy [Fatal]
  - Musculoskeletal stiffness [Fatal]
  - Musculoskeletal pain [Fatal]
  - Knee arthroplasty [Fatal]
  - Pain [Fatal]
  - Mobility decreased [Fatal]
  - Rheumatoid arthritis [Fatal]
  - Sleep disorder due to general medical condition, insomnia type [Fatal]
  - Synovitis [Fatal]
  - Rheumatic fever [Fatal]
  - Swollen joint count increased [Fatal]
  - Systemic lupus erythematosus [Fatal]
  - Sleep disorder [Fatal]
  - Swelling [Fatal]
  - Wound [Fatal]
  - Road traffic accident [Fatal]
  - Visual impairment [Fatal]
  - Pulmonary fibrosis [Fatal]
  - Abdominal pain [Fatal]
  - Abdominal pain upper [Fatal]
  - Asthenia [Fatal]
  - Asthma [Fatal]
  - Decreased appetite [Fatal]
  - Depression [Fatal]
  - Diarrhoea [Fatal]
  - Dry mouth [Fatal]
  - Dyspnoea [Fatal]
  - Ear infection [Fatal]
  - Fatigue [Fatal]
  - Headache [Fatal]
  - Hypertension [Fatal]
  - Infection [Fatal]
  - Insomnia [Fatal]
  - Laryngitis [Fatal]
  - Lip dry [Fatal]
  - Lower respiratory tract infection [Fatal]
  - Lupus vulgaris [Fatal]
  - Nasopharyngitis [Fatal]
  - Obesity [Fatal]
  - Paraesthesia [Fatal]
  - Oedema [Fatal]
  - Oedema peripheral [Fatal]
  - Pruritus [Fatal]
  - Type 2 diabetes mellitus [Fatal]
  - Stomatitis [Fatal]
  - Weight increased [Fatal]
  - Rash [Fatal]
  - Duodenal ulcer perforation [Fatal]
  - Drug hypersensitivity [Fatal]
  - Abdominal discomfort [Fatal]
  - Alopecia [Fatal]
  - Amnesia [Fatal]
  - Anxiety [Fatal]
  - Arthritis [Fatal]
  - Arthropathy [Fatal]
  - Bronchitis [Fatal]
  - C-reactive protein [Fatal]
  - C-reactive protein increased [Fatal]
  - Confusional state [Fatal]
  - Crohn^s disease [Fatal]
  - Dizziness [Fatal]
  - Dyspepsia [Fatal]
  - Folliculitis [Fatal]
  - Gait inability [Fatal]
  - Helicobacter infection [Fatal]
  - Hepatic enzyme increased [Fatal]
  - Hypersensitivity [Fatal]
  - Liver function test increased [Fatal]
  - Liver injury [Fatal]
  - Lung disorder [Fatal]
  - Malaise [Fatal]
  - Memory impairment [Fatal]
  - Migraine [Fatal]
  - Muscle spasticity [Fatal]
  - Nausea [Fatal]
  - Night sweats [Fatal]
  - Pemphigus [Fatal]
  - Peripheral swelling [Fatal]
  - Peripheral venous disease [Fatal]
  - Pneumonia [Fatal]
  - Psoriasis [Fatal]
  - Pyrexia [Fatal]
  - Red blood cell sedimentation rate increased [Fatal]
  - Respiratory disorder [Fatal]
  - Retinitis [Fatal]
  - Rheumatoid factor positive [Fatal]
  - Sciatica [Fatal]
  - Sinusitis [Fatal]
  - Spinal fusion surgery [Fatal]
  - Spondylitis [Fatal]
  - Tachycardia [Fatal]
  - Upper respiratory tract infection [Fatal]
  - Urticaria [Fatal]
  - Vomiting [Fatal]
  - Walking aid user [Fatal]
  - Weight decreased [Fatal]
  - Wheezing [Fatal]
  - Wound infection [Fatal]
  - X-ray abnormal [Fatal]
  - Joint swelling [Fatal]
  - Therapeutic response decreased [Fatal]
  - Therapeutic product effect decreased [Fatal]
  - Therapy non-responder [Fatal]
  - Prescribed underdose [Fatal]
  - Contraindicated product administered [Fatal]
  - Maternal exposure during pregnancy [Fatal]
  - Medication error [Fatal]
  - Maternal exposure during pregnancy [Fatal]
  - Off label use [Fatal]
  - Prescribed overdose [Fatal]
  - Product use issue [Fatal]
  - Underdose [Fatal]
